FAERS Safety Report 6771035-9 (Version None)
Quarter: 2010Q2

REPORT INFORMATION
  Report Type: 
  Country: None (occurrence: None)
  Receive Date: 20100616
  Receipt Date: 20100609
  Transmission Date: 20101027
  Serious: Yes (Disabling)
  Sender: FDA-Public Use
  Company Number: GB-TEVA-237304ISR

PATIENT
  Age: 65 Year
  Sex: Male
  Weight: 90.4 kg

DRUGS (9)
  1. AMITRIPTYLINE [Suspect]
     Indication: DEPRESSION
  2. AMITRIPTYLINE [Suspect]
     Indication: PAIN
  3. AMITRIPTYLINE [Suspect]
     Indication: SLEEP DISORDER
  4. ATORVASTATIN [Suspect]
  5. BUPRENORPHINE [Suspect]
     Indication: BACK PAIN
     Dates: start: 20090501
  6. LANSOPRAZOLE [Suspect]
     Indication: DYSPEPSIA
  7. ROTIGOTINE [Suspect]
     Indication: PARKINSON'S DISEASE
     Route: 003
     Dates: start: 20090801
  8. SELEGILINE HCL [Suspect]
     Indication: PARKINSON'S DISEASE
     Route: 048
     Dates: start: 20100120, end: 20100123
  9. CARBIDOPA W/CARBIDOPA ANHYDROUS W/LEVODOPA [Suspect]
     Indication: PARKINSON'S DISEASE
     Route: 048
     Dates: start: 20090801

REACTIONS (4)
  - DIPLOPIA [None]
  - DRUG INTERACTION [None]
  - DYSARTHRIA [None]
  - NAUSEA [None]
